FAERS Safety Report 7843060-8 (Version None)
Quarter: 2011Q4

REPORT INFORMATION
  Report Type: 
  Country: None (occurrence: None)
  Receive Date: 20111025
  Receipt Date: 20111013
  Transmission Date: 20120403
  Serious: Yes (Hospitalization, Other)
  Sender: FDA-Public Use
  Company Number: US-BAYER-2011-015469

PATIENT
  Age: 18 Year
  Sex: Female
  Weight: 54.422 kg

DRUGS (5)
  1. YAZ [Suspect]
     Indication: PREMENSTRUAL SYNDROME
     Dosage: UNK
     Dates: start: 20080918, end: 20090301
  2. IBUPROFEN (ADVIL) [Concomitant]
     Dosage: UNK UNK, PRN
  3. NAPROSYN [Concomitant]
     Dosage: UNK
     Dates: start: 20091103
  4. IBUPROFEN [Concomitant]
     Dosage: UNK UNK, PRN
  5. MACROBID [Concomitant]
     Dosage: UNK
     Dates: start: 20091103

REACTIONS (16)
  - ABDOMINAL PAIN [None]
  - GALLBLADDER DISORDER [None]
  - HAEMORRHAGE [None]
  - APPENDICITIS [None]
  - PAIN [None]
  - VOMITING [None]
  - VAGINAL HAEMORRHAGE [None]
  - PELVIC PAIN [None]
  - BACK PAIN [None]
  - OVARIAN CYST [None]
  - ILEUS [None]
  - ANXIETY [None]
  - CONSTIPATION [None]
  - ANHEDONIA [None]
  - URINARY TRACT INFECTION [None]
  - NAUSEA [None]
